FAERS Safety Report 23469986 (Version 4)
Quarter: 2024Q2

REPORT INFORMATION
  Report Type: Report from Study
  Country: US (occurrence: US)
  Receive Date: 20240202
  Receipt Date: 20240426
  Transmission Date: 20240716
  Serious: Yes (Other)
  Sender: FDA-Public Use
  Company Number: US-UCBSA-2024000739

PATIENT
  Sex: Female

DRUGS (4)
  1. CERTOLIZUMAB PEGOL [Suspect]
     Active Substance: CERTOLIZUMAB PEGOL
     Indication: Ankylosing spondylitis
     Dosage: 400 MILLIGRAM, EV 4 WEEKS
     Route: 058
     Dates: start: 202311
  2. CERTOLIZUMAB PEGOL [Suspect]
     Active Substance: CERTOLIZUMAB PEGOL
     Indication: Psoriatic arthropathy
     Dosage: MAINTENANCE DOSE
     Dates: start: 202312
  3. CERTOLIZUMAB PEGOL [Suspect]
     Active Substance: CERTOLIZUMAB PEGOL
     Dosage: 400 MILLIGRAM, EV 4 WEEKS
     Route: 058
  4. TREMFYA [Concomitant]
     Active Substance: GUSELKUMAB
     Indication: Product used for unknown indication
     Dosage: UNK

REACTIONS (13)
  - Psoriatic arthropathy [Unknown]
  - Pneumonia [Unknown]
  - Migraine [Not Recovered/Not Resolved]
  - Pain [Not Recovered/Not Resolved]
  - Pain of skin [Not Recovered/Not Resolved]
  - Chest discomfort [Unknown]
  - Headache [Unknown]
  - Dyspnoea [Unknown]
  - Fatigue [Unknown]
  - Urinary tract infection [Unknown]
  - Upper respiratory tract infection [Unknown]
  - Cystitis [Unknown]
  - Furuncle [Unknown]

NARRATIVE: CASE EVENT DATE: 20230101
